FAERS Safety Report 10035210 (Version 3)
Quarter: 2015Q1

REPORT INFORMATION
  Report Type: Spontaneous
  Country: US (occurrence: US)
  Receive Date: 20140325
  Receipt Date: 20150323
  Transmission Date: 20150720
  Serious: Yes (Hospitalization, Other)
  Sender: FDA-Public Use
  Company Number: US-BAYER-2014-045125

PATIENT
  Age: 29 Year
  Sex: Female
  Weight: 74.83 kg

DRUGS (8)
  1. MIRENA [Suspect]
     Active Substance: LEVONORGESTREL
     Indication: CONTRACEPTION
     Dosage: UNK
  2. KLONOPIN [Concomitant]
     Active Substance: CLONAZEPAM
  3. ADVIL [Concomitant]
     Active Substance: IBUPROFEN
  4. CARISOPRODOL. [Concomitant]
     Active Substance: CARISOPRODOL
  5. DOXYCYCLINE. [Concomitant]
     Active Substance: DOXYCYCLINE
  6. ORTHO TRI CYCLEN [Concomitant]
     Active Substance: ETHINYL ESTRADIOL\NORGESTIMATE
  7. MIRENA [Suspect]
     Active Substance: LEVONORGESTREL
     Indication: CONTRACEPTION
     Dosage: 20 MCG/24HR, CONT
     Route: 015
     Dates: start: 201001
  8. WELLBUTRIN [Concomitant]
     Active Substance: BUPROPION HYDROCHLORIDE

REACTIONS (20)
  - Hormone level abnormal [None]
  - Ectopic pregnancy with contraceptive device [None]
  - Menorrhagia [None]
  - Depression [None]
  - Infertility female [None]
  - Emotional distress [None]
  - Anhedonia [None]
  - Embedded device [None]
  - Off label use [None]
  - Anxiety [None]
  - Device breakage [None]
  - Drug ineffective [None]
  - Impaired work ability [None]
  - Abdominal pain [None]
  - Injury [None]
  - Asthenia [None]
  - Feeling abnormal [None]
  - Device difficult to use [None]
  - Psychogenic pain disorder [None]
  - Complication of device removal [None]

NARRATIVE: CASE EVENT DATE: 2010
